FAERS Safety Report 4917067-4 (Version None)
Quarter: 2006Q1

REPORT INFORMATION
  Report Type: 
  Country: None (occurrence: None)
  Receive Date: 20060214
  Receipt Date: 20060203
  Transmission Date: 20060701
  Serious: Yes (Other)
  Sender: FDA-Public Use
  Company Number: 200610488GDS

PATIENT
  Age: 82 Year
  Sex: Female

DRUGS (7)
  1. CIPROFLOXACIN [Suspect]
  2. AMIODARONE [Concomitant]
  3. FUROSEMIDE [Concomitant]
  4. LEVOTHYROXINE SODIUM [Concomitant]
  5. SPIRONOLACTONE [Concomitant]
  6. ACETAMINOPHEN W/ CODEINE [Concomitant]
  7. WARFARIN [Concomitant]

REACTIONS (3)
  - ANURIA [None]
  - BLOOD CREATININE INCREASED [None]
  - HAEMODIALYSIS [None]
